FAERS Safety Report 4668942-X (Version None)
Quarter: 2005Q2

REPORT INFORMATION
  Report Type: 
  Country: None (occurrence: None)
  Receive Date: 20050523
  Receipt Date: 20050509
  Transmission Date: 20051028
  Serious: Yes (Other)
  Sender: FDA-Public Use
  Company Number: US-GLAXOSMITHKLINE-A0557674A

PATIENT
  Age: 59 Year
  Sex: Male
  Weight: 66 kg

DRUGS (3)
  1. CITRUCEL SUGAR-FREE SUSPENSION ORANGE [Suspect]
     Indication: DIARRHOEA
     Route: 048
     Dates: start: 20050321
  2. PROSCAR [Concomitant]
  3. BACTRIM [Concomitant]

REACTIONS (6)
  - DIFFICULTY IN WALKING [None]
  - GASTROINTESTINAL INJURY [None]
  - ILL-DEFINED DISORDER [None]
  - PROCTALGIA [None]
  - RECTAL HAEMORRHAGE [None]
  - RECTAL LACERATION POSTOPERATIVE [None]
